FAERS Safety Report 6383324-0 (Version None)
Quarter: 2009Q4

REPORT INFORMATION
  Report Type: 
  Country: None (occurrence: None)
  Receive Date: 20091001
  Receipt Date: 20090929
  Transmission Date: 20100525
  Serious: Yes (Hospitalization)
  Sender: FDA-Public Use
  Company Number: US-BIOGENIDEC-2009BI030530

PATIENT
  Sex: Female
  Weight: 117 kg

DRUGS (4)
  1. AVONEX [Suspect]
     Indication: MULTIPLE SCLEROSIS
     Route: 030
     Dates: start: 19980101, end: 20020101
  2. BUSPAR [Concomitant]
     Indication: ANXIETY
  3. MEDICATION (NOS) [Concomitant]
     Indication: MUSCLE SPASMS
  4. DITROPAN [Concomitant]
     Indication: URINARY INCONTINENCE

REACTIONS (5)
  - AMNESIA [None]
  - DEPRESSION [None]
  - DYSPHAGIA [None]
  - INTESTINAL FUNCTIONAL DISORDER [None]
  - RESPIRATORY DISORDER [None]
